FAERS Safety Report 14127744 (Version 1)
Quarter: 2017Q4

REPORT INFORMATION
  Report Type: Other
  Country: GB (occurrence: GB)
  Receive Date: 20171026
  Receipt Date: 20171026
  Transmission Date: 20180321
  Serious: Yes (Disabling)
  Sender: FDA-Public Use
  Company Number: GB-ASTELLAS-2017US042966

PATIENT
  Age: 44 Year
  Sex: Female
  Weight: 57 kg

DRUGS (3)
  1. SOLIFENACIN [Suspect]
     Active Substance: SOLIFENACIN
     Indication: PRODUCT USED FOR UNKNOWN INDICATION
     Dosage: UNK, UNKNOWN FREQ.
     Route: 065
     Dates: start: 20171011
  2. FUSIDIC ACID [Concomitant]
     Active Substance: FUSIDIC ACID
     Indication: SKIN DISORDER
     Dosage: 1 DF, TWICE DAILY APPLY TO AFFECTED SKIN
     Route: 065
     Dates: start: 20171005
  3. TRIMETHOPRIM. [Concomitant]
     Active Substance: TRIMETHOPRIM
     Indication: PRODUCT USED FOR UNKNOWN INDICATION
     Route: 065
     Dates: start: 20170725, end: 20170728

REACTIONS (3)
  - Dizziness [Recovering/Resolving]
  - Malaise [Unknown]
  - Confusional state [Unknown]

NARRATIVE: CASE EVENT DATE: 20171011
